FAERS Safety Report 15679971 (Version 1)
Quarter: 2018Q4

REPORT INFORMATION
  Report Type: Spontaneous
  Country: US (occurrence: US)
  Receive Date: 20181120
  Receipt Date: 20181120
  Transmission Date: 20190205
  Serious: No
  Sender: FDA-Public Use
  Company Number: None

PATIENT
  Age: 69 Year
  Sex: Male

DRUGS (1)
  1. CAPECITABINE TAB 500MG [Suspect]
     Active Substance: CAPECITABINE
     Dates: start: 201710

REACTIONS (7)
  - Hypoaesthesia [None]
  - Diarrhoea [None]
  - Gastritis [None]
  - Skin ulcer [None]
  - Nausea [None]
  - Pancreatitis [None]
  - Fatigue [None]

NARRATIVE: CASE EVENT DATE: 20181105
